FAERS Safety Report 4767849-7 (Version None)
Quarter: 2005Q3

REPORT INFORMATION
  Report Type: 
  Country: None (occurrence: None)
  Receive Date: 20050913
  Receipt Date: 20050831
  Transmission Date: 20060218
  Serious: Yes (Other)
  Sender: FDA-Public Use
  Company Number: 2005121998

PATIENT
  Sex: Male
  Weight: 77.1115 kg

DRUGS (5)
  1. ROGAINE [Suspect]
     Indication: MALE PATTERN BALDNESS
     Dosage: 1 ML TWICE DAILY, TOPICAL
     Route: 061
     Dates: start: 19830101
  2. GENERAL NUTRIENTS (GENERAL NUTRIENTS) [Concomitant]
  3. ASPIRIN [Concomitant]
  4. MULTIVITAMINS (ASCORBIC ACID, ERGOCALCIFEROL, FOLIC ACID, NICOTINAMIDE [Concomitant]
  5. FINASTERIDE [Concomitant]

REACTIONS (1)
  - NEUROPATHY PERIPHERAL [None]
